FAERS Safety Report 6196017-X (Version None)
Quarter: 2009Q2

REPORT INFORMATION
  Report Type: 
  Country: None (occurrence: None)
  Receive Date: 20090520
  Receipt Date: 20080414
  Transmission Date: 20091009
  Serious: Yes (Other)
  Sender: FDA-Public Use
  Company Number: US-ASTRAZENECA-2008UW04008

PATIENT
  Age: 17085 Day
  Sex: Female
  Weight: 82.8 kg

DRUGS (14)
  1. SEROQUEL [Suspect]
     Indication: SLEEP DISORDER
     Dosage: 100MG  TO  300 MG
     Route: 048
     Dates: start: 20030901, end: 20050201
  2. LEXAPRO [Concomitant]
     Route: 048
  3. EFFEXOR [Concomitant]
     Dosage: 37.5-225 MG
     Route: 048
  4. ABILIFY [Concomitant]
     Route: 048
  5. RESTORIL [Concomitant]
     Route: 048
  6. METFORMIN HCL [Concomitant]
     Route: 048
  7. LISINOPRIL [Concomitant]
     Route: 048
     Dates: start: 20041118, end: 20070125
  8. NEXIUM [Concomitant]
     Indication: GASTROOESOPHAGEAL REFLUX DISEASE
     Route: 048
     Dates: start: 20040229, end: 20040329
  9. TRAZODONE HCL [Concomitant]
     Route: 048
  10. ZOLOFT [Concomitant]
     Dosage: 50-100 MG
     Route: 048
  11. CLONAZEPAM [Concomitant]
     Route: 048
  12. PRILOSEC [Concomitant]
     Route: 048
  13. LIPITOR [Concomitant]
     Route: 048
  14. CELEXA [Concomitant]
     Route: 048

REACTIONS (19)
  - ASTIGMATISM [None]
  - BIPOLAR DISORDER [None]
  - BRONCHITIS [None]
  - CHRONIC SINUSITIS [None]
  - DYSLIPIDAEMIA [None]
  - EPICONDYLITIS [None]
  - GASTRITIS [None]
  - HEADACHE [None]
  - HYPERLIPIDAEMIA [None]
  - MAJOR DEPRESSION [None]
  - MENOPAUSAL SYMPTOMS [None]
  - MUCOCUTANEOUS CANDIDIASIS [None]
  - OESOPHAGITIS [None]
  - PHARYNGITIS [None]
  - PREGNANCY INDUCED HYPERTENSION [None]
  - PRESBYOPIA [None]
  - RECTAL POLYP [None]
  - TYPE 2 DIABETES MELLITUS [None]
  - URINARY TRACT INFECTION [None]
